FAERS Safety Report 24104754 (Version 2)
Quarter: 2024Q3

REPORT INFORMATION
  Report Type: Report from Study
  Country: FR (occurrence: FR)
  Receive Date: 20240717
  Receipt Date: 20240722
  Transmission Date: 20241016
  Serious: Yes (Hospitalization)
  Sender: STEMLINE THERAPEUTICS
  Company Number: FR-Stemline Therapeutics, Inc.-2024ST004155

PATIENT
  Age: 58 Year
  Sex: Female
  Weight: 61 kg

DRUGS (9)
  1. ELACESTRANT [Suspect]
     Active Substance: ELACESTRANT
     Indication: Breast cancer
     Route: 048
     Dates: start: 20240530, end: 20240621
  2. ELACESTRANT [Suspect]
     Active Substance: ELACESTRANT
     Indication: Hormone receptor positive HER2 negative breast cancer
  3. SAMURACICLIB [Suspect]
     Active Substance: SAMURACICLIB
     Indication: Breast cancer
     Route: 048
     Dates: start: 20240530, end: 20240621
  4. LEVOTHYROXINE [Concomitant]
     Active Substance: LEVOTHYROXINE\LEVOTHYROXINE SODIUM
     Indication: Hypothyroidism
     Dosage: 100 UG/L EVERY 1 DAYS
     Dates: start: 2009
  5. DOMPERIDONE [Concomitant]
     Active Substance: DOMPERIDONE
     Indication: Nausea
     Dosage: 10 MG, 2/DAYS
     Dates: start: 20240619
  6. DOMPERIDONE [Concomitant]
     Active Substance: DOMPERIDONE
     Indication: Vomiting
  7. ONDANSETRON [Concomitant]
     Active Substance: ONDANSETRON
     Indication: Nausea
     Dosage: 8 MG, EVERY 1 DAYS
     Dates: start: 20240530
  8. ONDANSETRON [Concomitant]
     Active Substance: ONDANSETRON
     Indication: Vomiting
  9. LOPERAMIDE [Concomitant]
     Active Substance: LOPERAMIDE
     Indication: Diarrhoea
     Dosage: 2 MG, EVERY 1 DAYS

REACTIONS (2)
  - Nausea [Recovering/Resolving]
  - Vomiting [Recovering/Resolving]

NARRATIVE: CASE EVENT DATE: 20240623
